FAERS Safety Report 12577845 (Version 1)
Quarter: 2016Q3

REPORT INFORMATION
  Report Type: Other
  Country: KR (occurrence: KR)
  Receive Date: 20160721
  Receipt Date: 20160721
  Transmission Date: 20161109
  Serious: Yes (Hospitalization)
  Sender: FDA-Public Use
  Company Number: KR-LUPIN PHARMACEUTICALS INC.-2015-03692

PATIENT
  Age: 16 Year
  Sex: Female

DRUGS (3)
  1. LAMOTRIGINE. [Suspect]
     Active Substance: LAMOTRIGINE
     Indication: SUICIDAL IDEATION
  2. LAMOTRIGINE. [Suspect]
     Active Substance: LAMOTRIGINE
     Indication: INTENTIONAL SELF-INJURY
     Dosage: UPTO 200MG
     Route: 065
     Dates: start: 201301
  3. LAMOTRIGINE. [Suspect]
     Active Substance: LAMOTRIGINE
     Indication: HOMICIDAL IDEATION

REACTIONS (3)
  - Suicidal ideation [Recovered/Resolved]
  - Personality disorder [Recovered/Resolved]
  - Depression [Recovered/Resolved]
